FAERS Safety Report 5857854-1 (Version None)
Quarter: 2008Q3

REPORT INFORMATION
  Report Type: 
  Country: None (occurrence: None)
  Receive Date: 20080822
  Receipt Date: 20080807
  Transmission Date: 20090109
  Serious: Yes (Death)
  Sender: FDA-Public Use
  Company Number: DSA_32274_2008

PATIENT
  Age: 82 Year
  Sex: Female

DRUGS (5)
  1. ATIVAN [Suspect]
     Indication: DRUG USE FOR UNKNOWN INDICATION
     Dosage: (1 MG QD ORAL), (3 MG QD), (6 MG QD), (4 MG QD)
     Dates: start: 20050101, end: 20080601
  2. ATIVAN [Suspect]
     Indication: DRUG USE FOR UNKNOWN INDICATION
     Dosage: (1 MG QD ORAL), (3 MG QD), (6 MG QD), (4 MG QD)
     Dates: start: 20080601
  3. ATIVAN [Suspect]
     Indication: DRUG USE FOR UNKNOWN INDICATION
     Dosage: (1 MG QD ORAL), (3 MG QD), (6 MG QD), (4 MG QD)
     Dates: start: 20080601
  4. ATIVAN [Suspect]
     Indication: DRUG USE FOR UNKNOWN INDICATION
     Dosage: (1 MG QD ORAL), (3 MG QD), (6 MG QD), (4 MG QD)
     Dates: start: 20080601
  5. LORAZEPAM [Suspect]
     Indication: DRUG USE FOR UNKNOWN INDICATION
     Dosage: 3 MG QD PARENTERAL
     Route: 051
     Dates: start: 20080601, end: 20080601

REACTIONS (2)
  - JAUNDICE [None]
  - PNEUMONIA [None]
